FAERS Safety Report 4502126-0 (Version None)
Quarter: 2004Q4

REPORT INFORMATION
  Report Type: 
  Country: None (occurrence: None)
  Receive Date: 20041116
  Receipt Date: 20030605
  Transmission Date: 20050328
  Serious: Yes (Hospitalization, Disabling)
  Sender: FDA-Public Use
  Company Number: US-MERCK-0306USA00695

PATIENT
  Sex: Female

DRUGS (10)
  1. VIOXX [Suspect]
     Route: 048
  2. VIOXX [Suspect]
     Route: 048
     Dates: start: 20000214
  3. PREVACID [Concomitant]
     Route: 065
     Dates: start: 19980101, end: 20030201
  4. ULTRAM [Concomitant]
     Route: 065
     Dates: start: 20000531
  5. NORVASC [Concomitant]
     Route: 065
  6. PULMICORT [Concomitant]
     Route: 065
  7. CELEBREX [Concomitant]
     Route: 065
  8. MAXZIDE [Concomitant]
     Route: 065
  9. ESTRADIOL [Concomitant]
     Route: 065
  10. SINGULAIR [Concomitant]
     Route: 065

REACTIONS (52)
  - ABDOMINAL DISTENSION [None]
  - ABDOMINAL PAIN [None]
  - ABNORMAL FAECES [None]
  - ACUTE SINUSITIS [None]
  - ADVERSE EVENT [None]
  - ARTHRALGIA [None]
  - ASTHENIA [None]
  - BARRETT'S OESOPHAGUS [None]
  - BENIGN DUODENAL NEOPLASM [None]
  - BLOOD PRESSURE INCREASED [None]
  - BRONCHOSPASM [None]
  - BRUNNER'S GLAND HYPERPLASIA [None]
  - CHEST PAIN [None]
  - CHILLS [None]
  - CONSTIPATION [None]
  - COSTOCHONDRITIS [None]
  - COUGH [None]
  - DERMATITIS ALLERGIC [None]
  - DIARRHOEA [None]
  - DYSPNOEA [None]
  - EAR PAIN [None]
  - EPICONDYLITIS [None]
  - FLATULENCE [None]
  - GASTROINTESTINAL PAIN [None]
  - GASTROOESOPHAGEAL REFLUX DISEASE [None]
  - HEADACHE [None]
  - HELICOBACTER GASTRITIS [None]
  - HELICOBACTER INFECTION [None]
  - HEPATIC FUNCTION ABNORMAL [None]
  - HYPOAESTHESIA [None]
  - INJURY [None]
  - LIPIDS INCREASED [None]
  - LIVER FUNCTION TEST ABNORMAL [None]
  - MELAENA [None]
  - NAUSEA [None]
  - NECK PAIN [None]
  - OTITIS MEDIA [None]
  - PAIN [None]
  - PAIN IN EXTREMITY [None]
  - PARAESTHESIA [None]
  - PHARYNGITIS [None]
  - POSTNASAL DRIP [None]
  - PYREXIA [None]
  - RHINITIS ALLERGIC [None]
  - RHINORRHOEA [None]
  - SENSATION OF PRESSURE [None]
  - SINUS CONGESTION [None]
  - SINUS HEADACHE [None]
  - SINUSITIS [None]
  - SPUTUM DISCOLOURED [None]
  - TENDONITIS [None]
  - UPPER RESPIRATORY TRACT INFECTION [None]
